FAERS Safety Report 17265963 (Version 1)
Quarter: 2020Q1

REPORT INFORMATION
  Report Type: Spontaneous
  Country: US (occurrence: US)
  Receive Date: 20200114
  Receipt Date: 20200114
  Transmission Date: 20200409
  Serious: No
  Sender: FDA-Public Use
  Company Number: US-AMGEN INC.-USASP2020005150

PATIENT

DRUGS (1)
  1. AIMOVIG [Suspect]
     Active Substance: ERENUMAB-AOOE
     Indication: MIGRAINE PROPHYLAXIS
     Dosage: 70 MILLIGRAM, QMO
     Route: 058

REACTIONS (6)
  - Nausea [Unknown]
  - Mood swings [Unknown]
  - Pain [Unknown]
  - Muscle spasms [Unknown]
  - Decreased appetite [Unknown]
  - Panic attack [Unknown]
